FAERS Safety Report 10231260 (Version 1)
Quarter: 2014Q2

REPORT INFORMATION
  Report Type: Spontaneous
  Country: US (occurrence: US)
  Receive Date: 20140611
  Receipt Date: 20140611
  Transmission Date: 20141212
  Serious: Yes (Other)
  Sender: FDA-Public Use
  Company Number: US-GLAXOSMITHKLINE-A1075786A

PATIENT
  Age: 23 Year
  Sex: Female

DRUGS (3)
  1. FLOLAN [Suspect]
     Indication: PULMONARY ARTERIAL HYPERTENSION
     Dosage: 21NGKM CONTINUOUS
     Route: 042
     Dates: start: 20060905
  2. COUMADIN [Concomitant]
  3. ADCIRCA [Concomitant]

REACTIONS (2)
  - Cardiac flutter [Unknown]
  - Device leakage [Unknown]
